FAERS Safety Report 6047797-5 (Version None)
Quarter: 2009Q1

REPORT INFORMATION
  Report Type: 
  Country: None (occurrence: None)
  Receive Date: 20090123
  Receipt Date: 20090113
  Transmission Date: 20090719
  Serious: Yes (Other)
  Sender: FDA-Public Use
  Company Number: GB-AMGEN-US329124

PATIENT
  Age: 42 Year
  Sex: Female
  Weight: 82 kg

DRUGS (7)
  1. ENBREL [Suspect]
     Indication: PSORIATIC ARTHROPATHY
     Dosage: DOSE UNKNOWN (2 IN 1 WEEK)
     Route: 058
     Dates: start: 20070710
  2. FOLIC ACID [Concomitant]
     Route: 048
     Dates: start: 20030101
  3. TRAMADOL HCL [Concomitant]
     Dates: start: 20060101
  4. OMEPRAZOLE [Concomitant]
     Dosage: UNKNOWN
     Dates: start: 20060101
  5. SULFASALAZINE [Concomitant]
     Indication: PSORIATIC ARTHROPATHY
     Route: 048
  6. FLUOXETINE [Concomitant]
     Indication: DEPRESSION
     Route: 048
     Dates: start: 20060101
  7. METHOTREXATE [Concomitant]
     Indication: PSORIATIC ARTHROPATHY
     Route: 048
     Dates: start: 20030601

REACTIONS (1)
  - SUNBURN [None]
